FAERS Safety Report 9332505 (Version 2)
Quarter: 2013Q2

REPORT INFORMATION
  Report Type: Spontaneous
  Country: IT (occurrence: None)
  Receive Date: 20130603
  Receipt Date: 20130619
  Transmission Date: 20140414
  Serious: Yes (Hospitalization)
  Sender: FDA-Public Use
  Company Number: SYM-2013-03979

PATIENT
  Age: 9 Year
  Sex: 0

DRUGS (4)
  1. XENAZINE [Suspect]
     Indication: NEURODEGENERATIVE DISORDER
     Route: 048
     Dates: start: 20130506, end: 20130519
  2. DIAZEPAM (DIAZEPAM) (DIAZEPAM) [Concomitant]
  3. LIORESAL (BACLOFEN) (BACLOFEN) [Concomitant]
  4. ARTANE (TRIHEXYPHENIDYL HYDROCHLORIDE) (TRIHEXYPHENIDYL HYDROCHLORIDE) [Concomitant]

REACTIONS (2)
  - Off label use [None]
  - Dystonia [None]
